FAERS Safety Report 8180244-6 (Version None)
Quarter: 2012Q1

REPORT INFORMATION
  Report Type: 
  Country: None (occurrence: None)
  Receive Date: 20120302
  Receipt Date: 20110808
  Transmission Date: 20120608
  Serious: No
  Sender: FDA-Public Use
  Company Number: US-GLAXOSMITHKLINE-A0875195A

PATIENT
  Age: 29 Year
  Sex: Female
  Weight: 69.1 kg

DRUGS (2)
  1. OLUX E [Suspect]
     Indication: ECZEMA
     Dosage: 1APP SINGLE DOSE
     Route: 061
     Dates: start: 20100614, end: 20100614
  2. NO CONCURRENT MEDICATION [Concomitant]

REACTIONS (2)
  - LIVE BIRTH [None]
  - MATERNAL EXPOSURE DURING PREGNANCY [None]
